FAERS Safety Report 8551391-1 (Version None)
Quarter: 2012Q3

REPORT INFORMATION
  Report Type: 
  Country: None (occurrence: None)
  Receive Date: 20120730
  Receipt Date: 20120223
  Transmission Date: 20120928
  Serious: No
  Sender: FDA-Public Use
  Company Number: US-ALLERGAN-1202548US

PATIENT
  Age: 76 Year
  Sex: Female

DRUGS (2)
  1. LUMIGAN [Suspect]
     Indication: INTRAOCULAR PRESSURE INCREASED
     Dosage: 2 GTT, QHS
     Route: 047
     Dates: start: 20120222
  2. PROPYLENE GLYCOL [Concomitant]
     Indication: DRY EYE
     Dosage: UNK
     Route: 047

REACTIONS (7)
  - OCULAR HYPERAEMIA [None]
  - SINUS HEADACHE [None]
  - SCLERAL HYPERAEMIA [None]
  - EYE IRRITATION [None]
  - EYELID OEDEMA [None]
  - SLEEP DISORDER [None]
  - EYE PAIN [None]
